FAERS Safety Report 14023321 (Version 3)
Quarter: 2017Q4

REPORT INFORMATION
  Report Type: Spontaneous
  Country: US (occurrence: US)
  Receive Date: 20170929
  Receipt Date: 20171031
  Transmission Date: 20180321
  Serious: Yes (Death)
  Sender: FDA-Public Use
  Company Number: US-009507513-1709USA011873

PATIENT
  Age: 37 Year
  Sex: Male

DRUGS (2)
  1. INTRON A [Suspect]
     Active Substance: INTERFERON ALFA-2B
     Indication: RECTAL CANCER
     Dosage: 8 MILLION IU, 3 TIMES WEEKLY
     Route: 058
     Dates: start: 20170616, end: 20170829
  2. INTRON A [Suspect]
     Active Substance: INTERFERON ALFA-2B
     Indication: LUNG NEOPLASM MALIGNANT

REACTIONS (2)
  - Overdose [Fatal]
  - Product use in unapproved indication [Unknown]

NARRATIVE: CASE EVENT DATE: 2017
